FAERS Safety Report 16719708 (Version 1)
Quarter: 2019Q3

REPORT INFORMATION
  Report Type: Spontaneous
  Country: US (occurrence: US)
  Receive Date: 20190702
  Receipt Date: 20190702
  Transmission Date: 20191005
  Serious: Yes (Other)
  Sender: FDA-Public Use
  Company Number: None

PATIENT
  Age: 1 Day
  Sex: Male
  Weight: 3.64 kg

DRUGS (1)
  1. VITAMIN A D [Suspect]
     Active Substance: PETROLATUM
     Route: 061
     Dates: start: 20190627

REACTIONS (3)
  - Skin irritation [None]
  - Product odour abnormal [None]
  - Pain [None]

NARRATIVE: CASE EVENT DATE: 20190627
